FAERS Safety Report 7431935-3 (Version None)
Quarter: 2011Q2

REPORT INFORMATION
  Report Type: 
  Country: None (occurrence: None)
  Receive Date: 20110422
  Receipt Date: 20100506
  Transmission Date: 20111010
  Serious: No
  Sender: FDA-Public Use
  Company Number: US-BRISTOL-MYERS SQUIBB COMPANY-15095607

PATIENT
  Sex: Male

DRUGS (2)
  1. TAXOTERE [Suspect]
     Route: 041
  2. CARBOPLATIN [Suspect]
     Route: 042

REACTIONS (1)
  - DRY MOUTH [None]
